FAERS Safety Report 8574893-0 (Version None)
Quarter: 2012Q3

REPORT INFORMATION
  Report Type: 
  Country: None (occurrence: None)
  Receive Date: 20120807
  Receipt Date: 20120723
  Transmission Date: 20120928
  Serious: Yes (Other)
  Sender: FDA-Public Use
  Company Number: US-SANOFI-AVENTIS-2012SA052704

PATIENT
  Age: 49 Year
  Sex: Female

DRUGS (5)
  1. GLIPIZIDE [Suspect]
     Route: 065
  2. LANTUS SOLOSTAR [Suspect]
     Route: 058
     Dates: start: 20120705
  3. ALL OTHER THERAPEUTIC PRODUCTS [Suspect]
     Route: 065
  4. METFORMIN HYDROCHLORIDE [Suspect]
     Route: 065
  5. SOLOSTAR [Suspect]
     Dates: start: 20120705

REACTIONS (3)
  - MIGRAINE [None]
  - VISUAL IMPAIRMENT [None]
  - CHEST PAIN [None]
